FAERS Safety Report 6558321-2 (Version None)
Quarter: 2010Q1

REPORT INFORMATION
  Report Type: 
  Country: None (occurrence: None)
  Receive Date: 20100128
  Receipt Date: 20100128
  Transmission Date: 20100710
  Serious: Yes (Other)
  Sender: FDA-Public Use
  Company Number: None

PATIENT
  Age: 53 Year
  Sex: Female
  Weight: 73.4827 kg

DRUGS (1)
  1. CLINDAMYCIN [Suspect]
     Indication: PAIN IN JAW
     Dosage: 2 CAPSULES EVERY 8 HRS. MOUTH ONE DOSE
     Route: 048
     Dates: start: 20100106

REACTIONS (4)
  - ERYTHEMA [None]
  - EYE INFLAMMATION [None]
  - EYE SWELLING [None]
  - RASH [None]
